FAERS Safety Report 13904399 (Version 4)
Quarter: 2018Q2

REPORT INFORMATION
  Report Type: Spontaneous
  Country: JP (occurrence: JP)
  Receive Date: 20170825
  Receipt Date: 20180606
  Transmission Date: 20180711
  Serious: Yes (Death, Hospitalization, Other)
  Sender: FDA-Public Use
  Company Number: JP-009507513-1708JPN002142J

PATIENT
  Age: 86 Year
  Sex: Male
  Weight: 48 kg

DRUGS (11)
  1. CELECOX [Concomitant]
     Active Substance: CELECOXIB
     Dosage: 100 MG, BID
     Route: 048
  2. CALONAL [Concomitant]
     Active Substance: ACETAMINOPHEN
     Dosage: 400 MG, TID
     Route: 048
  3. OXYCONTIN [Concomitant]
     Active Substance: OXYCODONE HYDROCHLORIDE
     Dosage: 5.0 MG, BID
     Route: 048
  4. KEYTRUDA [Suspect]
     Active Substance: PEMBROLIZUMAB
     Indication: NON-SMALL CELL LUNG CANCER
     Dosage: 200 MG, Q3W
     Route: 041
     Dates: start: 20170620, end: 20170620
  5. MAGNESIUM OXIDE. [Concomitant]
     Active Substance: MAGNESIUM OXIDE
     Dosage: 330.0 MG, TID
     Route: 048
  6. VOLTAREN [Concomitant]
     Active Substance: DICLOFENAC SODIUM
     Dosage: 1 DF, UNK
     Route: 054
  7. E KEPPRA [Concomitant]
     Active Substance: LEVETIRACETAM
     Indication: PROPHYLAXIS
     Dosage: 1000.0 MG, BID
     Route: 048
  8. FLIVAS OD [Concomitant]
     Active Substance: NAFTOPIDIL
     Dosage: 25.0 MG, QD
     Route: 048
  9. OXINORM [Concomitant]
     Dosage: 2.5 MG, PRN
     Route: 048
  10. RABEPRAZOLE NA [Concomitant]
     Active Substance: RABEPRAZOLE SODIUM
     Indication: PROPHYLAXIS
     Dosage: 10.0 MG, QD
     Route: 048
  11. BETANIS [Concomitant]
     Active Substance: MIRABEGRON
     Dosage: 50.0 MG, QD
     Route: 048

REACTIONS (3)
  - Lung disorder [Recovered/Resolved with Sequelae]
  - Death [Fatal]
  - Hepatic function abnormal [Recovering/Resolving]

NARRATIVE: CASE EVENT DATE: 20170707
